FAERS Safety Report 25124296 (Version 2)
Quarter: 2025Q2

REPORT INFORMATION
  Report Type: Spontaneous
  Country: US (occurrence: US)
  Receive Date: 20250326
  Receipt Date: 20250623
  Transmission Date: 20250716
  Serious: No
  Sender: IPSEN BIOPHARMACEUTICALS, INC.
  Company Number: US-IPSEN Group, Research and Development-2025-06780

PATIENT
  Age: 54 Year
  Sex: Female

DRUGS (1)
  1. IQIRVO [Suspect]
     Active Substance: ELAFIBRANOR
     Indication: Primary biliary cholangitis
     Route: 048

REACTIONS (5)
  - Fatigue [Unknown]
  - Vertigo [Unknown]
  - Abdominal discomfort [Unknown]
  - Ear infection [Unknown]
  - Product dose omission issue [Unknown]
